FAERS Safety Report 14173890 (Version 1)
Quarter: 2017Q4

REPORT INFORMATION
  Report Type: Report from Study
  Country: CN (occurrence: CN)
  Receive Date: 20171109
  Receipt Date: 20171109
  Transmission Date: 20180321
  Serious: Yes (Hospitalization)
  Sender: FDA-Public Use
  Company Number: CN-BAYER-2017-204782

PATIENT
  Age: 75 Year
  Sex: Male

DRUGS (1)
  1. STIVARGA [Suspect]
     Active Substance: REGORAFENIB
     Indication: GASTROINTESTINAL CARCINOMA
     Dosage: 160 MG, QD
     Route: 048
     Dates: start: 20171011

REACTIONS (7)
  - Skin ulcer [None]
  - Anorectal swelling [None]
  - Eczema [Recovering/Resolving]
  - Palmar-plantar erythrodysaesthesia syndrome [None]
  - Bone pain [None]
  - Perianal erythema [None]
  - Pain of skin [None]
